FAERS Safety Report 13519565 (Version 2)
Quarter: 2017Q3

REPORT INFORMATION
  Report Type: Spontaneous
  Country: US (occurrence: US)
  Receive Date: 20170505
  Receipt Date: 20170714
  Transmission Date: 20171127
  Serious: Yes (Hospitalization, Other)
  Sender: FDA-Public Use
  Company Number: US-ALLERGAN-1717386US

PATIENT
  Age: 74 Year
  Sex: Female

DRUGS (2)
  1. TIMOLOL UNK [Suspect]
     Active Substance: TIMOLOL
     Indication: OPEN ANGLE GLAUCOMA
     Dosage: UNK
     Route: 047
  2. LATANOPROST. [Concomitant]
     Active Substance: LATANOPROST
     Indication: OPEN ANGLE GLAUCOMA
     Dosage: UNK
     Route: 047

REACTIONS (3)
  - Wheezing [Recovering/Resolving]
  - Chronotropic incompetence [Unknown]
  - Dyspnoea [Recovering/Resolving]
